FAERS Safety Report 7396314-6 (Version None)
Quarter: 2011Q1

REPORT INFORMATION
  Report Type: 
  Country: None (occurrence: None)
  Receive Date: 20110331
  Receipt Date: 20110331
  Transmission Date: 20110831
  Serious: Yes (Disabling)
  Sender: FDA-Public Use
  Company Number: None

PATIENT
  Sex: Female
  Weight: 83.9154 kg

DRUGS (1)
  1. AVELOX [Suspect]
     Indication: RESPIRATORY DISORDER
     Dosage: 1 QT 1ST DAY 1 PT DAILY X 5 440 MG 1 DAILY 7 PILLS
     Dates: start: 20101230, end: 20110112

REACTIONS (1)
  - NEUROPATHY PERIPHERAL [None]
